FAERS Safety Report 14769147 (Version 2)
Quarter: 2018Q2

REPORT INFORMATION
  Report Type: Report from Study
  Country: BR (occurrence: BR)
  Receive Date: 20180417
  Receipt Date: 20180522
  Transmission Date: 20180711
  Serious: Yes (Congenital Anomaly, Other)
  Sender: FDA-Public Use
  Company Number: BR-MYLANLABS-2018M1024623

PATIENT
  Sex: Male
  Weight: 3.6 kg

DRUGS (8)
  1. ISENTRESS [Suspect]
     Active Substance: RALTEGRAVIR POTASSIUM
     Indication: HIV INFECTION
     Dosage: 800 MG, QD 1 COURSE
     Route: 064
     Dates: start: 20171212, end: 20180305
  2. PROMETHAZINE [Concomitant]
     Active Substance: PROMETHAZINE\PROMETHAZINE HYDROCHLORIDE
     Indication: PRODUCT USED FOR UNKNOWN INDICATION
     Route: 048
  3. LAMIVUDINE/ZIDOVUDINE [Suspect]
     Active Substance: LAMIVUDINE\ZIDOVUDINE
     Indication: HIV INFECTION
     Dosage: 900 MG, QD 1 COURSE
     Route: 064
     Dates: start: 20171212, end: 20180305
  4. IVERMECTIN. [Concomitant]
     Active Substance: IVERMECTIN
     Indication: PRODUCT USED FOR UNKNOWN INDICATION
  5. VITAMINS                           /00067501/ [Concomitant]
     Active Substance: VITAMINS
     Indication: PRODUCT USED FOR UNKNOWN INDICATION
  6. BENZATHINE PENICILLIN [Concomitant]
     Active Substance: PENICILLIN G BENZATHINE
     Indication: PRODUCT USED FOR UNKNOWN INDICATION
  7. BACTRIM [Concomitant]
     Active Substance: SULFAMETHOXAZOLE\TRIMETHOPRIM
     Indication: PRODUCT USED FOR UNKNOWN INDICATION
  8. FERROUS SULFATE. [Concomitant]
     Active Substance: FERROUS SULFATE
     Indication: PRODUCT USED FOR UNKNOWN INDICATION

REACTIONS (3)
  - Congenital syphilis [Unknown]
  - Foetal exposure during pregnancy [Recovered/Resolved]
  - Macrocephaly [Unknown]
